FAERS Safety Report 6040810-0 (Version None)
Quarter: 2009Q1

REPORT INFORMATION
  Report Type: 
  Country: None (occurrence: None)
  Receive Date: 20090116
  Receipt Date: 20080602
  Transmission Date: 20090719
  Serious: No
  Sender: FDA-Public Use
  Company Number: US-BRISTOL-MYERS SQUIBB COMPANY-14213326

PATIENT
  Age: 52 Year
  Sex: Female
  Weight: 77 kg

DRUGS (4)
  1. ABILIFY [Suspect]
     Indication: BIPOLAR DISORDER
  2. WELLBUTRIN [Concomitant]
  3. VALIUM [Concomitant]
  4. ESTROVEN [Concomitant]

REACTIONS (1)
  - ALOPECIA [None]
